FAERS Safety Report 19310372 (Version 1)
Quarter: 2021Q2

REPORT INFORMATION
  Report Type: Spontaneous
  Country: US (occurrence: US)
  Receive Date: 20210526
  Receipt Date: 20210526
  Transmission Date: 20210717
  Serious: Yes (Other)
  Sender: FDA-Public Use
  Company Number: US-GLAXOSMITHKLINE-US2021GSK107859

PATIENT
  Sex: Female

DRUGS (2)
  1. ZANTAC [Suspect]
     Active Substance: RANITIDINE HYDROCHLORIDE
     Indication: NERVOUS SYSTEM DISORDER
     Dosage: 25 MG, QD
     Route: 065
     Dates: start: 199301, end: 201901
  2. ZANTAC [Suspect]
     Active Substance: RANITIDINE HYDROCHLORIDE
     Indication: NERVOUS SYSTEM DISORDER
     Dosage: 25 MG, QD
     Route: 065
     Dates: start: 199301, end: 201901

REACTIONS (3)
  - Skin cancer [Unknown]
  - Breast cancer [Unknown]
  - Lung neoplasm malignant [Unknown]
